FAERS Safety Report 6053963-5 (Version None)
Quarter: 2009Q1

REPORT INFORMATION
  Report Type: 
  Country: None (occurrence: None)
  Receive Date: 20090127
  Receipt Date: 20090116
  Transmission Date: 20090719
  Serious: Yes (Hospitalization, Disabling)
  Sender: FDA-Public Use
  Company Number: MY-MERCK-0901MYS00004

PATIENT
  Age: 73 Year
  Sex: Male

DRUGS (2)
  1. FOSAMAX [Suspect]
     Route: 048
     Dates: start: 20030101, end: 20080101
  2. ALENDRONATE SODIUM AND CHOLECALCIFEROL [Suspect]
     Route: 048
     Dates: start: 20080101, end: 20090101

REACTIONS (3)
  - ARTHROPATHY [None]
  - FEMUR FRACTURE [None]
  - FRACTURE NONUNION [None]
